FAERS Safety Report 9582436 (Version 1)
Quarter: 2013Q4

REPORT INFORMATION
  Report Type: Spontaneous
  Country: US (occurrence: US)
  Receive Date: 20131002
  Receipt Date: 20131002
  Transmission Date: 20140711
  Serious: No
  Sender: FDA-Public Use
  Company Number: US-AMGEN-USASP2013040526

PATIENT
  Age: 62 Year
  Sex: Female
  Weight: 56.69 kg

DRUGS (14)
  1. ENBREL [Suspect]
     Indication: PRODUCT USED FOR UNKNOWN INDICATION
     Dosage: 50 MG, QWK
     Route: 058
  2. METHOTREXATE [Concomitant]
     Dosage: 2.5 MG, UNK
  3. LIDODERM [Concomitant]
     Dosage: UNK
  4. TRAMADOL                           /00599202/ [Concomitant]
     Dosage: 50 MG, UNK
  5. PREDNISONE [Concomitant]
     Dosage: 1 MG, UNK
  6. DAYPRO [Concomitant]
     Dosage: 600 MG, UNK
  7. FLEXERIL                           /00428402/ [Concomitant]
     Dosage: 5 MG, UNK
  8. TRIAMTERENE AND HYDROCHLOROTHIAZIDE [Concomitant]
     Dosage: 25 AND 37.5, UNK, UNK
  9. ZANTAC 75 DISSOLVE [Concomitant]
     Dosage: UNK
  10. PROZAC [Concomitant]
     Dosage: 10 MG, UNK
  11. MULTIVITAMINS, PLAIN [Concomitant]
     Dosage: UNK
  12. VITAMIN D                          /00107901/ [Concomitant]
     Dosage: 1000 UNIT, UNK
  13. ALBUTEROL                          /00139501/ [Concomitant]
     Dosage: 90 MUG, UNK
  14. POTASSIUM [Concomitant]
     Dosage: 75 MG, UNK

REACTIONS (1)
  - Therapeutic response decreased [Unknown]
